FAERS Safety Report 4885309-X (Version None)
Quarter: 2005Q4

REPORT INFORMATION
  Report Type: 
  Country: None (occurrence: None)
  Receive Date: 20051220
  Receipt Date: 20061027
  Transmission Date: 20060501
  Serious: Yes (Other)
  Sender: FDA-Public Use
  Company Number: 422983

PATIENT
  Sex: Female

DRUGS (1)
  1. BONIVA [Suspect]
     Indication: DRUG USE FOR UNKNOWN INDICATION
     Dosage: ORAL
     Route: 048
     Dates: start: 20051022

REACTIONS (5)
  - ASTHENIA [None]
  - BACK PAIN [None]
  - MYALGIA [None]
  - PHARYNGOLARYNGEAL PAIN [None]
  - TREMOR [None]
